FAERS Safety Report 10269185 (Version 1)
Quarter: 2014Q2

REPORT INFORMATION
  Report Type: Spontaneous
  Country: US (occurrence: US)
  Receive Date: 20140630
  Receipt Date: 20140630
  Transmission Date: 20141212
  Serious: No
  Sender: FDA-Public Use
  Company Number: US-SA-2014SA058875

PATIENT
  Age: 72 Year
  Sex: Female

DRUGS (2)
  1. HECTOROL [Suspect]
     Indication: RENAL FAILURE CHRONIC
     Route: 065
     Dates: start: 201404
  2. ERYTHROPOIETIN [Concomitant]
     Route: 042

REACTIONS (4)
  - Hypotension [Unknown]
  - Feeling hot [Unknown]
  - Flushing [Unknown]
  - Pruritus [Unknown]
